FAERS Safety Report 9458478 (Version 1)
Quarter: 2013Q3

REPORT INFORMATION
  Report Type: Report from Study
  Country: CA (occurrence: CA)
  Receive Date: 20130814
  Receipt Date: 20130814
  Transmission Date: 20140515
  Serious: Yes (Other)
  Sender: FDA-Public Use
  Company Number: CA-JNJFOC-20130805237

PATIENT
  Age: 31 Year
  Sex: Male
  Weight: 96.2 kg

DRUGS (3)
  1. REMICADE [Suspect]
     Indication: CROHN^S DISEASE
     Route: 042
     Dates: start: 20080503
  2. IMURAN [Concomitant]
     Route: 065
  3. CIPROFLOXACIN [Concomitant]
     Route: 065

REACTIONS (1)
  - Drain placement [Unknown]
